FAERS Safety Report 7482527-1 (Version None)
Quarter: 2011Q2

REPORT INFORMATION
  Report Type: 
  Country: None (occurrence: None)
  Receive Date: 20110516
  Receipt Date: 20110505
  Transmission Date: 20111010
  Serious: Yes (Hospitalization)
  Sender: FDA-Public Use
  Company Number: SE-BAYER-2011-038178

PATIENT
  Age: 24 Year
  Sex: Female

DRUGS (1)
  1. YASMIN [Suspect]
     Indication: PRODUCT USED FOR UNKNOWN INDICATION
     Dosage: UNK
     Route: 048
     Dates: end: 20110323

REACTIONS (5)
  - COUGH [None]
  - RESPIRATORY DISORDER [None]
  - CHEST PAIN [None]
  - PULMONARY EMBOLISM [None]
  - CHEST DISCOMFORT [None]
